FAERS Safety Report 4840025-5 (Version None)
Quarter: 2005Q4

REPORT INFORMATION
  Report Type: 
  Country: None (occurrence: None)
  Receive Date: 20051125
  Receipt Date: 20051111
  Transmission Date: 20060501
  Serious: Yes (Other)
  Sender: FDA-Public Use
  Company Number: PHBS2005AT13326

PATIENT
  Age: 85 Year
  Sex: Female

DRUGS (8)
  1. VISUDYNE [Suspect]
     Dosage: 6 MG/M^2 ONCE IV
     Route: 042
     Dates: start: 20050530, end: 20050530
  2. TRIAMCINOLONE [Suspect]
     Dosage: 4 MG DAILY EY
     Dates: start: 20050530, end: 20050530
  3. THROMBO ASS [Concomitant]
  4. LOSEC [Concomitant]
  5. TEBOFORTAN [Concomitant]
  6. TRITAZIDE [Concomitant]
  7. CAL-D-VITA [Concomitant]
  8. DOMINAL FORTE [Concomitant]

REACTIONS (3)
  - CHOROIDAL INFARCTION [None]
  - EYE HAEMORRHAGE [None]
  - VISUAL ACUITY REDUCED [None]
